FAERS Safety Report 22301997 (Version 1)
Quarter: 2023Q2

REPORT INFORMATION
  Report Type: Spontaneous
  Country: ES (occurrence: None)
  Receive Date: 20230510
  Receipt Date: 20230510
  Transmission Date: 20230722
  Serious: Yes (Other)
  Sender: FDA-Public Use
  Company Number: 2023A101374

PATIENT
  Age: 83 Year
  Sex: Male

DRUGS (12)
  1. ROSUVASTATIN [Interacting]
     Active Substance: ROSUVASTATIN
     Indication: Dyslipidaemia
     Dosage: 20.0MG UNKNOWN
     Route: 048
  2. DAROLUTAMIDE [Interacting]
     Active Substance: DAROLUTAMIDE
  3. DAROLUTAMIDE [Interacting]
     Active Substance: DAROLUTAMIDE
  4. VALSARTAN [Interacting]
     Active Substance: VALSARTAN
     Dosage: 320.0MG UNKNOWN
  5. MANIDIPINE [Concomitant]
     Active Substance: MANIDIPINE
     Indication: Hypertension
     Dosage: 20.0MG UNKNOWN
  6. TORSEMIDE [Concomitant]
     Active Substance: TORSEMIDE
     Indication: Chronic kidney disease
     Dosage: 10.0MG UNKNOWN
  7. SEMAGLUTIDE [Concomitant]
     Active Substance: SEMAGLUTIDE
     Indication: Type 2 diabetes mellitus
     Dosage: 3.0MG UNKNOWN
  8. FEBUXOSTAT [Concomitant]
     Active Substance: FEBUXOSTAT
     Indication: Hyperuricaemia
     Dosage: 80.0MG UNKNOWN
  9. EDOXABAN TOSYLATE [Concomitant]
     Active Substance: EDOXABAN TOSYLATE
     Indication: Atrial fibrillation
     Dosage: 30.0MG UNKNOWN
  10. BISOPROLOL [Concomitant]
     Active Substance: BISOPROLOL
     Indication: Atrial fibrillation
     Dosage: 5.0MG UNKNOWN
  11. DAPAGLIFLOZIN [Concomitant]
     Active Substance: DAPAGLIFLOZIN
     Indication: Type 2 diabetes mellitus
     Dosage: 10.0MG UNKNOWN
  12. INSULIN GLARGINE [Concomitant]
     Active Substance: INSULIN GLARGINE
     Indication: Type 2 diabetes mellitus
     Dosage: 20.0IU UNKNOWN

REACTIONS (4)
  - Renal impairment [Unknown]
  - Dyspnoea [Unknown]
  - Drug interaction [Unknown]
  - Myalgia [Unknown]
